FAERS Safety Report 9161642 (Version 2)
Quarter: 2013Q3

REPORT INFORMATION
  Report Type: Report from Study
  Country: CH (occurrence: CH)
  Receive Date: 20130313
  Receipt Date: 20130917
  Transmission Date: 20140515
  Serious: Yes (Hospitalization)
  Sender: FDA-Public Use
  Company Number: CH-BRISTOL-MYERS SQUIBB COMPANY-17468026

PATIENT
  Age: 42 Year
  Sex: Male

DRUGS (7)
  1. CETUXIMAB [Suspect]
     Indication: OESOPHAGEAL CARCINOMA
     Dosage: 860MG: 18NOV11?520MG: 25NOV11-10JAN12 46 DAYS?500MG: 18JAN12-ONG; RECENT: 14FEB12
     Route: 042
     Dates: start: 20111118
  2. CISPLATIN [Suspect]
     Indication: OESOPHAGEAL CARCINOMA
     Dosage: 1DF:?160MG/40MG; RECENT DOSE: 14-FEB-2012.
     Route: 042
     Dates: start: 20111118
  3. TAXOTERE [Suspect]
     Indication: OESOPHAGEAL CARCINOMA
     Dosage: 1DF: 160MG/40MG; RECENT DOSE: 14-FEB-2012.
     Route: 042
     Dates: start: 20111118
  4. ASPIRIN CARDIO [Concomitant]
     Route: 048
     Dates: start: 20111205
  5. FRAXIFORTE [Concomitant]
     Dosage: 0.8ML: 13DEC11-04MAR12?1.6ML: 04MAR12-ONG
     Route: 058
     Dates: start: 20111213
  6. NEXIUM [Concomitant]
     Route: 048
     Dates: start: 20111227
  7. SYMBICORT [Concomitant]
     Dosage: 1DF: 200/6MG

REACTIONS (2)
  - Peripheral ischaemia [Recovered/Resolved]
  - Femoral artery embolism [Recovered/Resolved]
